FAERS Safety Report 17797613 (Version 1)
Quarter: 2020Q2

REPORT INFORMATION
  Report Type: Spontaneous
  Country: DE (occurrence: DE)
  Receive Date: 20200518
  Receipt Date: 20200518
  Transmission Date: 20200714
  Serious: Yes (Hospitalization)
  Sender: FDA-Public Use
  Company Number: DE-TEVA-2020-DE-1235455

PATIENT
  Age: 56 Year
  Sex: Female

DRUGS (2)
  1. METAMIZOL [Suspect]
     Active Substance: METAMIZOLE SODIUM
     Dosage: 500 MG, MULTIPLE DOSES
     Route: 048
  2. AMOXICILLIN. [Suspect]
     Active Substance: AMOXICILLIN
     Dosage: NK MG, NK
     Route: 048

REACTIONS (7)
  - Periorbital oedema [Unknown]
  - Pyrexia [Unknown]
  - Musculoskeletal pain [Unknown]
  - Product administration error [Unknown]
  - Pruritus [Unknown]
  - Face oedema [Unknown]
  - Headache [Unknown]
